FAERS Safety Report 4905381-8 (Version None)
Quarter: 2006Q1

REPORT INFORMATION
  Report Type: 
  Country: None (occurrence: None)
  Receive Date: 20060207
  Receipt Date: 20060207
  Transmission Date: 20060701
  Serious: Yes (Hospitalization, Other)
  Sender: FDA-Public Use
  Company Number: None

PATIENT
  Age: 58 Year
  Sex: Male
  Weight: 88 kg

DRUGS (9)
  1. GATIFLOXACIN [Suspect]
     Indication: BRONCHITIS
     Dosage: 400MG, ONCE DAILY, PO
     Route: 048
     Dates: start: 20051212, end: 20051213
  2. ASPIRIN [Concomitant]
  3. ERYTHROMYCIN [Concomitant]
  4. COLCHICINE [Concomitant]
  5. CYCLOBENZAPEINE [Concomitant]
  6. FUROSEMIDE [Concomitant]
  7. GUAIFENSEN [Concomitant]
  8. HUMULIN 70/30 [Concomitant]
  9. FENTANYL [Concomitant]

REACTIONS (4)
  - ASTHENIA [None]
  - DIZZINESS [None]
  - HYPOGLYCAEMIA [None]
  - PAIN [None]
